FAERS Safety Report 7148692-0 (Version None)
Quarter: 2010Q4

REPORT INFORMATION
  Report Type: 
  Country: None (occurrence: None)
  Receive Date: 20101209
  Receipt Date: 20101129
  Transmission Date: 20110411
  Serious: Yes (Life-Threatening, Hospitalization, Other)
  Sender: FDA-Public Use
  Company Number: JP-ROCHE-710553

PATIENT
  Sex: Female
  Weight: 40 kg

DRUGS (20)
  1. TOCILIZUMAB [Suspect]
     Indication: RHEUMATOID ARTHRITIS
     Route: 041
     Dates: start: 20090717, end: 20090717
  2. TOCILIZUMAB [Suspect]
     Route: 041
     Dates: start: 20090812, end: 20090812
  3. TOCILIZUMAB [Suspect]
     Route: 041
     Dates: start: 20090909, end: 20090909
  4. TOCILIZUMAB [Suspect]
     Route: 041
     Dates: start: 20091007, end: 20091007
  5. TOCILIZUMAB [Suspect]
     Route: 041
     Dates: start: 20091111, end: 20091111
  6. TOCILIZUMAB [Suspect]
     Route: 041
     Dates: start: 20091209, end: 20091209
  7. TOCILIZUMAB [Suspect]
     Route: 041
     Dates: start: 20100113, end: 20100113
  8. TOCILIZUMAB [Suspect]
     Route: 041
     Dates: start: 20100210, end: 20100210
  9. TOCILIZUMAB [Suspect]
     Route: 041
     Dates: start: 20100310, end: 20100310
  10. TOCILIZUMAB [Suspect]
     Route: 041
     Dates: start: 20100407, end: 20100407
  11. TOCILIZUMAB [Suspect]
     Route: 041
     Dates: start: 20100506, end: 20100506
  12. TOCILIZUMAB [Suspect]
     Route: 041
     Dates: start: 20100602, end: 20100602
  13. VOLTAREN [Concomitant]
     Dosage: INTERCALATING AGENT
     Route: 054
  14. VOLTAREN [Concomitant]
     Dosage: THE FIRST 12.5-25 MG
     Route: 054
  15. ZYRTEC [Concomitant]
     Route: 048
     Dates: end: 20100602
  16. BLOPRESS [Concomitant]
     Dosage: DRUG REPORTED:CANDESARTAN CILEXETIL
     Route: 048
  17. KINEDAK [Concomitant]
     Dosage: FORM: PERORAL AGENT
     Route: 048
  18. CINALONG [Concomitant]
     Route: 048
  19. URSO 250 [Concomitant]
     Route: 048
  20. KIPRES [Concomitant]
     Route: 048
     Dates: start: 20100113

REACTIONS (22)
  - ASCITES [None]
  - CARDIAC FAILURE CHRONIC [None]
  - CELLULITIS [None]
  - CELLULITIS STREPTOCOCCAL [None]
  - COMPUTERISED TOMOGRAM ABDOMEN ABNORMAL [None]
  - FIBRIN DEGRADATION PRODUCTS INCREASED [None]
  - HEPATIC NEOPLASM [None]
  - HEPATITIS B [None]
  - HYPERKERATOSIS [None]
  - HYPOAESTHESIA [None]
  - HYPOGLYCAEMIA [None]
  - NEUROPATHY PERIPHERAL [None]
  - NEUTROPHIL COUNT DECREASED [None]
  - OCCULT BLOOD [None]
  - PLATELET COUNT DECREASED [None]
  - PLEURAL EFFUSION [None]
  - PNEUMOCOCCAL BACTERAEMIA [None]
  - PNEUMONIA [None]
  - RASH [None]
  - SEPSIS [None]
  - SKIN ULCER [None]
  - SOFT TISSUE INFECTION [None]
